FAERS Safety Report 15605169 (Version 2)
Quarter: 2019Q1

REPORT INFORMATION
  Report Type: Report from Study
  Country: None (occurrence: US)
  Receive Date: 20181112
  Receipt Date: 20190108
  Transmission Date: 20190417
  Serious: Yes (Other)
  Sender: FDA-Public Use
  Company Number: US-ABBVIE-17K-163-1869670-00

PATIENT
  Age: 71 Year
  Sex: Male

DRUGS (2)
  1. HUMIRA [Suspect]
     Active Substance: ADALIMUMAB
     Indication: PSORIATIC ARTHROPATHY
  2. HUMIRA [Suspect]
     Active Substance: ADALIMUMAB
     Indication: PSORIASIS
     Route: 058

REACTIONS (14)
  - Cardiac arrest [Unknown]
  - Haematochezia [Unknown]
  - Polyp [Unknown]
  - Foot deformity [Unknown]
  - Cardiac disorder [Unknown]
  - Procedural complication [Unknown]
  - Sleep apnoea syndrome [Unknown]
  - Tongue disorder [Unknown]
  - Lung disorder [Unknown]
  - Pulmonary mass [Unknown]
  - Pharyngeal mass [Unknown]
  - Neoplasm skin [Unknown]
  - Hypotension [Unknown]
  - Diabetes mellitus [Unknown]

NARRATIVE: CASE EVENT DATE: 20170906
